FAERS Safety Report 7157080-2 (Version None)
Quarter: 2010Q4

REPORT INFORMATION
  Report Type: 
  Country: None (occurrence: None)
  Receive Date: 20101214
  Receipt Date: 20091228
  Transmission Date: 20110411
  Serious: No
  Sender: FDA-Public Use
  Company Number: US-ASTRAZENECA-2009SE33583

PATIENT
  Age: 863 Month
  Sex: Female
  Weight: 99.8 kg

DRUGS (2)
  1. CRESTOR [Suspect]
     Route: 048
     Dates: start: 20090101
  2. CRESTOR [Suspect]
     Route: 048
     Dates: start: 20090101

REACTIONS (6)
  - BURNING SENSATION [None]
  - EXERCISE TOLERANCE DECREASED [None]
  - MUSCULAR WEAKNESS [None]
  - PRURITUS [None]
  - SUNBURN [None]
  - WEIGHT INCREASED [None]
